FAERS Safety Report 7785925-1 (Version None)
Quarter: 2011Q3

REPORT INFORMATION
  Report Type: 
  Country: None (occurrence: None)
  Receive Date: 20110929
  Receipt Date: 20110920
  Transmission Date: 20111222
  Serious: Yes (Hospitalization)
  Sender: FDA-Public Use
  Company Number: JP-ROCHE-796978

PATIENT
  Sex: Female

DRUGS (2)
  1. PACLITAXEL [Concomitant]
     Indication: BREAST CANCER
     Dosage: NOTE: DOSAGE IS UNCERTAIN
     Route: 041
  2. HERCEPTIN [Suspect]
     Indication: BREAST CANCER
     Route: 041

REACTIONS (1)
  - DIARRHOEA HAEMORRHAGIC [None]
